FAERS Safety Report 10066784 (Version 1)
Quarter: 2014Q2

REPORT INFORMATION
  Report Type: Spontaneous
  Country: FR (occurrence: FR)
  Receive Date: 20140408
  Receipt Date: 20140408
  Transmission Date: 20141212
  Serious: Yes (Hospitalization)
  Sender: FDA-Public Use
  Company Number: PHHY2014FR041929

PATIENT
  Age: 47 Year
  Sex: Female

DRUGS (2)
  1. ESTRADERM [Suspect]
     Dosage: 4 DF, MONTHLY BETWEEN THE 8TH AND 20TH DAY
     Route: 062
  2. ANDROCUR [Suspect]
     Indication: HIRSUTISM
     Dosage: 0.5 DF, DAILY
     Route: 048

REACTIONS (1)
  - Meningioma [Recovered/Resolved with Sequelae]
